FAERS Safety Report 7714689-2 (Version None)
Quarter: 2011Q3

REPORT INFORMATION
  Report Type: 
  Country: None (occurrence: None)
  Receive Date: 20110829
  Receipt Date: 20110819
  Transmission Date: 20111222
  Serious: Yes (Other)
  Sender: FDA-Public Use
  Company Number: US-JNJFOC-20110811204

PATIENT
  Sex: Female
  Weight: 58.97 kg

DRUGS (2)
  1. ORTHO TRI-CYCLEN LO [Suspect]
     Indication: CYST
     Route: 048
     Dates: start: 20110814, end: 20110816
  2. ORTHO TRI-CYCLEN LO [Suspect]
     Indication: METRORRHAGIA
     Route: 048
     Dates: start: 20110814, end: 20110816

REACTIONS (6)
  - CIRCUMORAL OEDEMA [None]
  - PRURITUS GENERALISED [None]
  - OFF LABEL USE [None]
  - URTICARIA [None]
  - SWOLLEN TONGUE [None]
  - RASH GENERALISED [None]
